FAERS Safety Report 10441555 (Version 1)
Quarter: 2014Q3

REPORT INFORMATION
  Report Type: Report from Study
  Country: BR (occurrence: BR)
  Receive Date: 20140908
  Receipt Date: 20140908
  Transmission Date: 20150326
  Serious: Yes (Other)
  Sender: FDA-Public Use
  Company Number: PHHY2014BR115171

PATIENT
  Age: 88 Year
  Sex: Female

DRUGS (12)
  1. DIOVAN HCT [Suspect]
     Active Substance: HYDROCHLOROTHIAZIDE\VALSARTAN
     Indication: HYPERTENSION
     Dosage: 1 DF, QD (IN THE MORNING)
  2. EBIX [Concomitant]
     Active Substance: MEMANTINE HYDROCHLORIDE
     Indication: GASTRIC DISORDER
     Dosage: 1 DF, QD (IN THE MORNING)
  3. LEVOID [Concomitant]
     Active Substance: LEVOTHYROXINE
     Dosage: 1 DF, DAILY
  4. RIVOTRIL [Concomitant]
     Active Substance: CLONAZEPAM
     Dosage: 0.5 MG, QD (AT NIGHT)
  5. RIVOTRIL [Concomitant]
     Active Substance: CLONAZEPAM
     Dosage: 1 MG, UNK
  6. LYRICA [Concomitant]
     Active Substance: PREGABALIN
     Indication: FIBROMYALGIA
     Dosage: 1 DF, QD (AT NIGHT)
  7. RIVOTRIL [Concomitant]
     Active Substance: CLONAZEPAM
     Indication: SLEEP DISORDER
     Dosage: 2 MG, UNK
  8. NEXIUM [Concomitant]
     Active Substance: ESOMEPRAZOLE MAGNESIUM
     Indication: GASTRIC DISORDER
     Dosage: 1 DF, DAILY
  9. BIO D3 VITAMIN [Concomitant]
     Indication: BLOOD CALCIUM ABNORMAL
     Dosage: 6 DF, DAILY
  10. PROCIMAX [Concomitant]
     Active Substance: CITALOPRAM HYDROBROMIDE
     Indication: DEPRESSION
     Dosage: 1 UKN, DAILY
  11. QUETROS [Concomitant]
     Active Substance: QUETIAPINE
     Indication: DELIRIUM
     Dosage: 1 DF, QD (AT 8 O^CLOCK)
     Dates: start: 201405
  12. VITAMIN D3 CALCIUM [Concomitant]
     Indication: MINERAL SUPPLEMENTATION
     Dosage: 1 UKN, DAILY

REACTIONS (14)
  - Hallucination [Unknown]
  - Body height decreased [Unknown]
  - Confusional state [Recovering/Resolving]
  - Speech disorder [Recovering/Resolving]
  - Weight decreased [Unknown]
  - Senile dementia [Unknown]
  - Abasia [Unknown]
  - Movement disorder [Unknown]
  - Dementia Alzheimer^s type [Unknown]
  - Fall [Unknown]
  - Aggression [Unknown]
  - Upper limb fracture [Unknown]
  - Osteoporosis [Unknown]
  - Choking [Recovering/Resolving]

NARRATIVE: CASE EVENT DATE: 201403
